FAERS Safety Report 7262639-8 (Version None)
Quarter: 2011Q1

REPORT INFORMATION
  Report Type: 
  Country: None (occurrence: None)
  Receive Date: 20110130
  Receipt Date: 20100910
  Transmission Date: 20110831
  Serious: No
  Sender: FDA-Public Use
  Company Number: US-ABBOTT-10P-163-0670590-00

PATIENT
  Age: 30 Year
  Sex: Male

DRUGS (2)
  1. LIDEX [Concomitant]
     Indication: PSORIASIS
     Dosage: TWICE DAILY TO ELBOWS AND KNUCKLES
     Route: 061
  2. HUMIRA [Suspect]
     Indication: PSORIASIS
     Dates: start: 20100501

REACTIONS (2)
  - INJECTION SITE PAIN [None]
  - INJECTION SITE HAEMATOMA [None]
